FAERS Safety Report 12483833 (Version 1)
Quarter: 2016Q2

REPORT INFORMATION
  Report Type: Spontaneous
  Country: ES (occurrence: ES)
  Receive Date: 20160621
  Receipt Date: 20160621
  Transmission Date: 20160815
  Serious: Yes (Other)
  Sender: FDA-Public Use
  Company Number: ES-009507513-1606ESP008121

PATIENT
  Age: 31 Year
  Sex: Female
  Weight: 40 kg

DRUGS (3)
  1. MONTELUKAST SODIUM. [Suspect]
     Active Substance: MONTELUKAST SODIUM
     Indication: ASTHMA
     Dosage: 1 A DAY
     Route: 065
     Dates: start: 20131015
  2. NUVARING [Suspect]
     Active Substance: ETHINYL ESTRADIOL\ETONOGESTREL
     Indication: CONTRACEPTION
     Dosage: THREE WEEKS INSIDE THE VAGINA AND ONE OUTSIDE, THE REST WEEK
     Route: 067
     Dates: start: 20150212, end: 20160613
  3. VENTOLIN [Concomitant]
     Active Substance: ALBUTEROL SULFATE

REACTIONS (9)
  - Depression [Unknown]
  - Anxiety [Not Recovered/Not Resolved]
  - Uterine leiomyoma [Not Recovered/Not Resolved]
  - Panic reaction [Unknown]
  - Suicidal ideation [Unknown]
  - Obsessive thoughts [Unknown]
  - Insomnia [Not Recovered/Not Resolved]
  - Abnormal loss of weight [Not Recovered/Not Resolved]
  - Decreased appetite [Unknown]

NARRATIVE: CASE EVENT DATE: 20151101
